APPROVED DRUG PRODUCT: ORTHO-CEPT
Active Ingredient: DESOGESTREL; ETHINYL ESTRADIOL
Strength: 0.15MG;0.03MG **Federal Register determination that product was not discontinued or withdrawn for safety or effectiveness reasons**
Dosage Form/Route: TABLET;ORAL-21
Application: N020301 | Product #001
Applicant: JANSSEN PHARMACEUTICALS INC
Approved: Dec 14, 1992 | RLD: Yes | RS: No | Type: DISCN